FAERS Safety Report 8398528-5 (Version None)
Quarter: 2012Q2

REPORT INFORMATION
  Report Type: 
  Country: None (occurrence: None)
  Receive Date: 20120323
  Receipt Date: 20110413
  Transmission Date: 20120825
  Serious: Yes (Hospitalization, Other)
  Sender: FDA-Public Use
  Company Number: 163-21880-10031482

PATIENT
  Age: 61 Year
  Sex: Male
  Weight: 95.2554 kg

DRUGS (9)
  1. ASPIRIN [Concomitant]
  2. DECADRON [Concomitant]
  3. REVLIMID [Suspect]
     Indication: MULTIPLE MYELOMA
     Dosage: 25 MG, DAILY FOR 21 DAYS, PO 25 MG, DAILY FOR 21 DAYS, PO PO
     Route: 048
     Dates: start: 20100617
  4. REVLIMID [Suspect]
     Indication: MULTIPLE MYELOMA
     Dosage: 25 MG, DAILY FOR 21 DAYS, PO 25 MG, DAILY FOR 21 DAYS, PO PO
     Route: 048
     Dates: start: 20100101, end: 20100312
  5. REVLIMID [Suspect]
     Indication: MULTIPLE MYELOMA
     Dosage: 25 MG, DAILY FOR 21 DAYS, PO 25 MG, DAILY FOR 21 DAYS, PO PO
     Route: 048
     Dates: start: 20100701
  6. PRILOSEC (OMEPRAZOLE) (CAPSULES) [Concomitant]
  7. FEXOFENADINE (FEXOFENADINE) (TABLETS) [Concomitant]
  8. AREDIA [Concomitant]
  9. ACYCLOVIR (ACICLOVIR) (CAPSULES) [Concomitant]

REACTIONS (5)
  - PULMONARY EMBOLISM [None]
  - CHEST PAIN [None]
  - DEEP VEIN THROMBOSIS [None]
  - SPINAL DISORDER [None]
  - DYSPNOEA [None]
